FAERS Safety Report 12252849 (Version 1)
Quarter: 2016Q2

REPORT INFORMATION
  Report Type: Spontaneous
  Country: US (occurrence: US)
  Receive Date: 20160411
  Receipt Date: 20160411
  Transmission Date: 20160815
  Serious: Yes (Other)
  Sender: FDA-Public Use
  Company Number: US-CIPLA LTD.-2016US03682

PATIENT

DRUGS (3)
  1. CARBOPLATIN. [Suspect]
     Active Substance: CARBOPLATIN
     Indication: NON-RENAL CELL CARCINOMA OF KIDNEY
     Dosage: CYCLICAL, 4 MG/ML/MIN ON DAY 1
     Route: 065
  2. GEMCITABINE [Suspect]
     Active Substance: GEMCITABINE\GEMCITABINE HYDROCHLORIDE
     Indication: NON-RENAL CELL CARCINOMA OF KIDNEY
     Dosage: 1000 MG/M2 CYCLICAL, ON DAYS 1, 8, AND 15
     Route: 065
  3. PACLITAXEL. [Suspect]
     Active Substance: PACLITAXEL
     Indication: NON-RENAL CELL CARCINOMA OF KIDNEY
     Dosage: 80 MG/M2 CYCLICAL, ON DAYS 1, 8, AND 15
     Route: 065

REACTIONS (6)
  - Tinnitus [Recovered/Resolved]
  - Renal impairment [Recovered/Resolved]
  - Ototoxicity [Recovered/Resolved]
  - Colitis [Recovered/Resolved]
  - Vertigo [Recovered/Resolved]
  - Neutropenia [Recovered/Resolved]
